FAERS Safety Report 12884318 (Version 1)
Quarter: 2016Q4

REPORT INFORMATION
  Report Type: Spontaneous
  Country: US (occurrence: US)
  Receive Date: 20161026
  Receipt Date: 20161026
  Transmission Date: 20170207
  Serious: No
  Sender: FDA-Public Use
  Company Number: US-PFIZER INC-2016496748

PATIENT
  Age: 60 Year
  Sex: Female
  Weight: 68.4 kg

DRUGS (6)
  1. LYRICA [Suspect]
     Active Substance: PREGABALIN
     Dosage: 50MG IN THE MORNING, ONE NIGHT 50MG, THE NEXT TWO NIGHTS 75 MG
  2. LYRICA [Suspect]
     Active Substance: PREGABALIN
     Indication: PAIN
     Dosage: 75MG TWICE A DAY
     Dates: start: 201501
  3. LYRICA [Suspect]
     Active Substance: PREGABALIN
     Dosage: 50MG IN THE MORNING, ONE NIGHT 50MG, THE NEXT DAY TAKE 50MG IN THE MORNING AND 75MG AT NIGHT
     Dates: start: 20161016
  4. LYRICA [Suspect]
     Active Substance: PREGABALIN
     Dosage: 50MG IN THE MORNING AND 75MG AT NIGHT
  5. LYRICA [Suspect]
     Active Substance: PREGABALIN
     Dosage: 50MG IN THE MORNING, ONE NIGHT 50MG, THE NEXT TWO NIGHTS 75 MG
  6. LYRICA [Suspect]
     Active Substance: PREGABALIN
     Dosage: ONECE TRIED TO TAKE 75MG AT NIGHT AND NOT TAKE A MORNING DOSE
     Dates: start: 201608

REACTIONS (5)
  - Anxiety [Unknown]
  - Product use issue [Unknown]
  - Headache [Unknown]
  - Poor quality sleep [Recovering/Resolving]
  - Intentional product use issue [Unknown]

NARRATIVE: CASE EVENT DATE: 201501
